FAERS Safety Report 13997542 (Version 1)
Quarter: 2017Q3

REPORT INFORMATION
  Report Type: Spontaneous
  Country: US (occurrence: US)
  Receive Date: 20170921
  Receipt Date: 20170921
  Transmission Date: 20171128
  Serious: No
  Sender: FDA-Public Use
  Company Number: US-ALLERGAN-1679316US

PATIENT
  Sex: Female

DRUGS (1)
  1. CARAFATE [Suspect]
     Active Substance: SUCRALFATE
     Indication: GASTRIC ULCER
     Dosage: 10 ML, Q6HR
     Route: 048

REACTIONS (3)
  - Oesophageal pain [Recovered/Resolved]
  - Constipation [Unknown]
  - Wrong technique in product usage process [Unknown]
